FAERS Safety Report 7722761-6 (Version None)
Quarter: 2011Q3

REPORT INFORMATION
  Report Type: 
  Country: None (occurrence: None)
  Receive Date: 20110831
  Receipt Date: 20110818
  Transmission Date: 20111222
  Serious: Yes (Death, Other)
  Sender: FDA-Public Use
  Company Number: PL-MYLANLABS-2011S1017688

PATIENT
  Age: 12 Year
  Sex: Female

DRUGS (3)
  1. TACROLIMUS [Suspect]
     Indication: ACUTE GRAFT VERSUS HOST DISEASE IN SKIN
     Dosage: INITIATED AT 6MG; TITRATED TO 3MG. ADJUSTED TO A TROUGH LEVEL OF 10-20 NG/ML
     Route: 048
  2. TACROLIMUS [Suspect]
     Dosage: INITIATED AT 6MG; TITRATED TO 3MG. ADJUSTED TO A TROUGH LEVEL OF 10-20 NG/ML
     Route: 048
  3. METHYLPREDNISOLONE [Concomitant]
     Indication: CHRONIC GRAFT VERSUS HOST DISEASE
     Route: 065

REACTIONS (1)
  - POSTERIOR REVERSIBLE ENCEPHALOPATHY SYNDROME [None]
